FAERS Safety Report 8607210 (Version 2)
Quarter: 2013Q4

REPORT INFORMATION
  Report Type: Spontaneous
  Country: US (occurrence: US)
  Receive Date: 20120611
  Receipt Date: 20131022
  Transmission Date: 20140711
  Serious: Yes (Hospitalization, Disabling, Other)
  Sender: FDA-Public Use
  Company Number: US-ASTRAZENECA-2012SE34602

PATIENT
  Age: 22249 Day
  Sex: Male

DRUGS (42)
  1. NEXIUM [Suspect]
     Indication: GASTROOESOPHAGEAL REFLUX DISEASE
     Route: 048
     Dates: start: 2000, end: 2007
  2. NEXIUM [Suspect]
     Indication: HYPERCHLORHYDRIA
     Route: 048
     Dates: start: 2000, end: 2007
  3. NEXIUM [Suspect]
     Indication: GASTROOESOPHAGEAL REFLUX DISEASE
     Route: 048
     Dates: start: 20020120
  4. NEXIUM [Suspect]
     Indication: HYPERCHLORHYDRIA
     Route: 048
     Dates: start: 20020120
  5. PROTONIX [Suspect]
     Indication: HYPERCHLORHYDRIA
     Route: 065
     Dates: start: 2000
  6. ACIPHEX [Concomitant]
     Indication: HYPERCHLORHYDRIA
     Dates: start: 2000
  7. RANITIDINE HCL [Concomitant]
     Dates: start: 2003, end: 2005
  8. GAVISCON [Concomitant]
  9. PEPTO-BISMOL [Concomitant]
     Dosage: 2TSP, AS NEEDED
  10. MYLANTA [Concomitant]
     Dosage: 2TSP, AS NEEDED
  11. ACETAMINOPHEN W/CODENE [Concomitant]
     Indication: PAIN
  12. ALBUTEROL SULFATE [Concomitant]
     Indication: DYSPNOEA
  13. ALLOPURINOL [Concomitant]
     Indication: BLOOD PRESSURE
  14. AVANDIA [Concomitant]
     Indication: DIABETES MELLITUS
  15. BAYER ASPIRIN [Concomitant]
     Indication: PAIN
  16. BAYER ASPIRIN [Concomitant]
     Indication: HEART ALTERNATION
  17. BAYER ASPIRIN [Concomitant]
     Indication: PAIN
     Dosage: OTC
  18. BAYER ASPIRIN [Concomitant]
     Indication: HEART ALTERNATION
     Dosage: OTC
  19. CHLORPROMAZINE [Concomitant]
     Indication: HICCUPS
  20. CLOTRIMAZOLE [Concomitant]
     Indication: DRY MOUTH
  21. COZAAR [Concomitant]
     Indication: BLOOD PRESSURE ABNORMAL
  22. CRESTOR [Concomitant]
     Indication: BLOOD CHOLESTEROL ABNORMAL
     Route: 048
  23. GLIMEPIRIDE [Concomitant]
     Indication: DIABETES MELLITUS
  24. HYDROCODONE/APAP [Concomitant]
     Indication: PAIN
     Dosage: 5-500 MG
  25. IRON [Concomitant]
     Indication: BLOOD DISORDER
  26. JANUVIA [Concomitant]
     Indication: DIABETES MELLITUS
  27. LANTUS [Concomitant]
     Indication: DIABETES MELLITUS
     Dosage: 34 UNITS
  28. LEVOTHROID [Concomitant]
     Indication: THYROID DISORDER
  29. METOPROLOL ER [Concomitant]
     Indication: BLOOD PRESSURE ABNORMAL
  30. MULTI-VITAMIN [Concomitant]
     Indication: NUTRITIONAL SUPPLEMENTATION
  31. OXYCODONE/APAP [Concomitant]
     Indication: PAIN
     Dosage: 5-325 MG
  32. POTASSIUM GLUCONATE [Concomitant]
     Indication: BLOOD DISORDER
  33. PROCHLORPERAZINE [Concomitant]
     Indication: NAUSEA
  34. QUINAPRIL [Concomitant]
     Indication: HYPERTENSION
  35. TRICOR [Concomitant]
  36. TYLENOL [Concomitant]
     Indication: PAIN
  37. WELLBUTRIN XL [Concomitant]
     Dates: start: 20041129
  38. VITAMIN B COMPLEX 50 [Concomitant]
     Dates: start: 20040607
  39. PRAVACHOL [Concomitant]
     Dates: start: 20040607
  40. PLAVIX [Concomitant]
     Dates: start: 20040607
  41. MORPHINE SULFATE [Concomitant]
     Dates: start: 20071011
  42. LIPITOR [Concomitant]
     Dates: start: 20040611

REACTIONS (18)
  - Hip fracture [Unknown]
  - Cellulitis [Unknown]
  - Cataract [Unknown]
  - Peripheral arterial occlusive disease [Unknown]
  - Fall [Unknown]
  - Myocardial infarction [Unknown]
  - Mesothelioma [Unknown]
  - Femur fracture [Unknown]
  - Osteoporosis [Unknown]
  - Bone disorder [Unknown]
  - Angina pectoris [Unknown]
  - Chronic obstructive pulmonary disease [Unknown]
  - Cardiovascular disorder [Unknown]
  - Glaucoma [Unknown]
  - Vitamin D deficiency [Unknown]
  - Osteoarthritis [Unknown]
  - Renal disorder [Unknown]
  - Depression [Unknown]
